FAERS Safety Report 24624008 (Version 1)
Quarter: 2024Q4

REPORT INFORMATION
  Report Type: Spontaneous
  Country: KR (occurrence: KR)
  Receive Date: 20241115
  Receipt Date: 20241115
  Transmission Date: 20250114
  Serious: Yes (Other)
  Sender: ALKEM
  Company Number: KR-ALKEM LABORATORIES LIMITED-KR-ALKEM-2024-15428

PATIENT

DRUGS (2)
  1. METHYLPHENIDATE HYDROCHLORIDE [Suspect]
     Active Substance: METHYLPHENIDATE HYDROCHLORIDE
     Indication: Major depression
     Dosage: UNK
     Route: 065
  2. PAROXETINE [Suspect]
     Active Substance: PAROXETINE
     Indication: Major depression
     Dosage: UNK
     Route: 065

REACTIONS (2)
  - Serotonin syndrome [Unknown]
  - Mania [Unknown]
